FAERS Safety Report 7480828-4 (Version None)
Quarter: 2011Q2

REPORT INFORMATION
  Report Type: 
  Country: None (occurrence: None)
  Receive Date: 20110506
  Receipt Date: 20101215
  Transmission Date: 20111010
  Serious: Yes (Other)
  Sender: FDA-Public Use
  Company Number: A201002721

PATIENT
  Age: 1 Year
  Sex: Female

DRUGS (4)
  1. ETOPOSIDE [Concomitant]
  2. ANTI-HUMAN THYMOCYTE IMMUNOGLOBULIN, EQUINE [Concomitant]
  3. CYCLOPHOSPHAMIDE [Concomitant]
  4. BUSULFEX [Suspect]
     Indication: STEM CELL TRANSPLANT
     Dosage: 19.2 MG/KG/DAY

REACTIONS (7)
  - GASTROINTESTINAL HAEMORRHAGE [None]
  - URINARY BLADDER HAEMORRHAGE [None]
  - RENAL FAILURE [None]
  - GRAFT VERSUS HOST DISEASE [None]
  - THROMBOTIC MICROANGIOPATHY [None]
  - HAEMOLYSIS [None]
  - VENOOCCLUSIVE LIVER DISEASE [None]
